FAERS Safety Report 6814411-8 (Version None)
Quarter: 2010Q3

REPORT INFORMATION
  Report Type: 
  Country: None (occurrence: None)
  Receive Date: 20100702
  Receipt Date: 20100624
  Transmission Date: 20110219
  Serious: Yes (Hospitalization)
  Sender: FDA-Public Use
  Company Number: JP-BRISTOL-MYERS SQUIBB COMPANY-15169311

PATIENT
  Age: 51 Year
  Sex: Male
  Weight: 84 kg

DRUGS (6)
  1. BARACLUDE [Suspect]
     Indication: HEPATITIS B
     Dosage: 1MG/D(07MAY07-20APR09);0.5MG/D(21APR09-ONG).
     Route: 048
     Dates: start: 20070507
  2. ADEFOVIR DIPIVOXIL [Concomitant]
     Indication: HEPATITIS B
     Dosage: FORMULATION : TABLET.
     Route: 048
     Dates: start: 20060412, end: 20100420
  3. LASIX [Concomitant]
     Indication: ASCITES
     Route: 048
     Dates: start: 20060412, end: 20100420
  4. ALDACTONE [Concomitant]
     Indication: ASCITES
     Route: 048
     Dates: start: 20060412, end: 20100420
  5. OMEPRAL [Concomitant]
     Indication: VARICES OESOPHAGEAL
     Dosage: FORMULATION : TABLET.
     Route: 048
     Dates: start: 20060816, end: 20100420
  6. AMINOLEBAN [Concomitant]
     Indication: AMINO ACID LEVEL DECREASED
     Dosage: AMINOLEBAN EN (ENTERAL NUTRIENT FOR HEPATIC FAILURE).
     Route: 048
     Dates: start: 20060816, end: 20100420

REACTIONS (3)
  - HYPERLACTACIDAEMIA [None]
  - NEPHROTIC SYNDROME [None]
  - RENAL IMPAIRMENT [None]
